FAERS Safety Report 8525043-8 (Version None)
Quarter: 2012Q3

REPORT INFORMATION
  Report Type: 
  Country: None (occurrence: None)
  Receive Date: 20120720
  Receipt Date: 20120711
  Transmission Date: 20120928
  Serious: No
  Sender: FDA-Public Use
  Company Number: US-B.I. PHARMACEUTICALS,INC./RIDGEFIELD-2012-BP-15466BP

PATIENT
  Sex: Male

DRUGS (7)
  1. LISINOPRIL [Concomitant]
     Indication: BLOOD PRESSURE
  2. NORVASC [Concomitant]
     Indication: BLOOD PRESSURE
  3. JANUVIA [Concomitant]
     Indication: DIABETES MELLITUS
  4. SPIRIVA [Suspect]
     Indication: CHRONIC OBSTRUCTIVE PULMONARY DISEASE
     Dosage: 18 MCG
     Route: 055
     Dates: start: 20120702
  5. GLIPIZIDE [Concomitant]
     Indication: DIABETES MELLITUS
  6. LASIX [Concomitant]
     Indication: FLUID RETENTION
  7. ZOCOR [Concomitant]
     Indication: BLOOD CHOLESTEROL

REACTIONS (1)
  - BLOOD GLUCOSE INCREASED [None]
